FAERS Safety Report 6571868-8 (Version None)
Quarter: 2010Q1

REPORT INFORMATION
  Report Type: 
  Country: None (occurrence: None)
  Receive Date: 20100205
  Receipt Date: 20100202
  Transmission Date: 20100710
  Serious: Yes (Life-Threatening)
  Sender: FDA-Public Use
  Company Number: NO-SANOFI-AVENTIS-2010SA006308

PATIENT
  Age: 60 Year
  Sex: Female

DRUGS (6)
  1. ARAVA [Suspect]
     Dosage: NOT KNOWN
     Route: 048
     Dates: start: 20070101, end: 20090922
  2. TRENTAL [Concomitant]
     Route: 048
  3. PARACET [Concomitant]
     Dosage: UP TO 3 TIMES A DAY
     Route: 048
  4. ATACAND [Concomitant]
     Route: 048
  5. AERIUS [Concomitant]
     Route: 048
  6. MOBIC [Concomitant]
     Indication: RHEUMATOID ARTHRITIS
     Route: 048

REACTIONS (1)
  - HEPATIC FAILURE [None]
